FAERS Safety Report 8604951 (Version 2)
Quarter: 2012Q4

REPORT INFORMATION
  Report Type: Report from Study
  Country: IT (occurrence: IT)
  Receive Date: 20120608
  Receipt Date: 20120904
  Transmission Date: 20130627
  Serious: Yes (Other)
  Sender: FDA-Public Use
  Company Number: PHHO2012IT008548

PATIENT
  Age: 44 Year
  Sex: Female

DRUGS (4)
  1. FTY [Suspect]
     Indication: RELAPSING-REMITTING MULTIPLE SCLEROSIS
     Dosage: 0.5 mg, QD
     Route: 048
     Dates: start: 20120405, end: 20120411
  2. DISSENTEN [Concomitant]
     Indication: COLITIS ULCERATIVE
     Dosage: 1 xcm2, UNK
     Dates: start: 20080915
  3. DEPAKIN [Concomitant]
     Indication: DEPRESSION
     Dosage: 300 mg 1c+500 mg 1C
     Dates: start: 20110621
  4. LEXOTAN [Concomitant]
     Indication: DEPRESSION
     Dosage: q4-5+10+15
     Dates: start: 20110621

REACTIONS (1)
  - Oedema peripheral [Recovering/Resolving]
